FAERS Safety Report 6750488-6 (Version None)
Quarter: 2010Q2

REPORT INFORMATION
  Report Type: 
  Country: None (occurrence: None)
  Receive Date: 20100601
  Receipt Date: 20100528
  Transmission Date: 20101027
  Serious: Yes (Other)
  Sender: FDA-Public Use
  Company Number: CA-MERCK-0903CAN00011

PATIENT
  Sex: Male

DRUGS (5)
  1. PROSCAR [Suspect]
     Indication: BENIGN PROSTATIC HYPERPLASIA
     Route: 048
     Dates: start: 19920101, end: 19930101
  2. PROSCAR [Suspect]
     Route: 048
     Dates: start: 20080701
  3. PROSCAR [Suspect]
     Indication: DYSURIA
     Route: 048
     Dates: start: 19920101, end: 19930101
  4. PROSCAR [Suspect]
     Route: 048
     Dates: start: 20080701
  5. TAMSULOSIN HYDROCHLORIDE [Concomitant]
     Indication: DYSURIA
     Route: 065
     Dates: start: 20080701

REACTIONS (2)
  - ERECTILE DYSFUNCTION [None]
  - PROSTATE CANCER [None]
